FAERS Safety Report 24138730 (Version 4)
Quarter: 2025Q1

REPORT INFORMATION
  Report Type: Report from Study
  Country: US (occurrence: US)
  Receive Date: 20240725
  Receipt Date: 20250320
  Transmission Date: 20250408
  Serious: Yes (Hospitalization)
  Sender: PFIZER
  Company Number: US-PFIZER INC-PV202400096267

PATIENT
  Age: 88 Year
  Sex: Male

DRUGS (3)
  1. VYNDAMAX [Suspect]
     Active Substance: TAFAMIDIS
     Indication: Amyloidosis
  2. SIMVASTATIN [Concomitant]
     Active Substance: SIMVASTATIN
  3. ROSUVASTATIN [Concomitant]
     Active Substance: ROSUVASTATIN

REACTIONS (9)
  - Thrombosis [Unknown]
  - Oedema peripheral [Unknown]
  - Dizziness [Unknown]
  - Fatigue [Unknown]
  - Apathy [Unknown]
  - Renal disorder [Not Recovered/Not Resolved]
  - Back disorder [Unknown]
  - Spondylitis [Unknown]
  - Back pain [Unknown]

NARRATIVE: CASE EVENT DATE: 20231101
